FAERS Safety Report 7126143-X (Version None)
Quarter: 2010Q4

REPORT INFORMATION
  Report Type: 
  Country: None (occurrence: None)
  Receive Date: 20101129
  Receipt Date: 20101123
  Transmission Date: 20110411
  Serious: Yes (Life-Threatening, Hospitalization)
  Sender: FDA-Public Use
  Company Number: DE-TEVA-256501GER

PATIENT
  Age: 52 Year
  Sex: Female
  Weight: 89.5 kg

DRUGS (3)
  1. BISOPROLOL FUMARATE [Suspect]
     Indication: HYPERTENSION
     Route: 048
     Dates: start: 20030101
  2. ETORICOXIB (ARCOXIA) [Suspect]
     Indication: OSTEOARTHRITIS
     Route: 048
     Dates: start: 20080416, end: 20080503
  3. BUDESONIDE W/FORMOTEROL FUMARATE (SYMBICORT TURBUHALER) [Concomitant]
     Indication: CHRONIC OBSTRUCTIVE PULMONARY DISEASE
     Dosage: 1 DF CONTAINING 160 MICROGRAM BUDESONIDE AND 4.5 MICROGRAM FORMOTEROL
     Route: 055
     Dates: start: 20000101

REACTIONS (2)
  - HEPATIC NECROSIS [None]
  - HEPATITIS [None]
